FAERS Safety Report 8046474-9 (Version None)
Quarter: 2012Q1

REPORT INFORMATION
  Report Type: 
  Country: None (occurrence: None)
  Receive Date: 20120113
  Receipt Date: 20120111
  Transmission Date: 20120608
  Serious: Yes (Hospitalization, Other)
  Sender: FDA-Public Use
  Company Number: HU-ABBOTT-11P-076-0873943-00

PATIENT
  Age: 33 Year
  Sex: Male

DRUGS (6)
  1. ETANERCEPT [Concomitant]
     Indication: ANKYLOSING SPONDYLITIS
     Route: 050
     Dates: start: 20041001
  2. SULFASALAZINE [Concomitant]
     Indication: PRODUCT USED FOR UNKNOWN INDICATION
  3. INDOMETHACIN [Concomitant]
     Indication: PRODUCT USED FOR UNKNOWN INDICATION
  4. HUMIRA [Suspect]
     Indication: ANKYLOSING SPONDYLITIS
     Route: 058
     Dates: start: 20070501, end: 20080101
  5. HUMIRA [Suspect]
     Dates: start: 20081201, end: 20110201
  6. HUMIRA [Suspect]
     Dates: start: 20110801

REACTIONS (4)
  - PYREXIA [None]
  - COUGH [None]
  - SARCOIDOSIS [None]
  - DYSPNOEA [None]
